FAERS Safety Report 7232704-X (Version None)
Quarter: 2011Q1

REPORT INFORMATION
  Report Type: 
  Country: None (occurrence: None)
  Receive Date: 20110107
  Receipt Date: 20101223
  Transmission Date: 20110831
  Serious: Yes (Hospitalization)
  Sender: FDA-Public Use
  Company Number: 024602

PATIENT
  Sex: Male

DRUGS (13)
  1. CIMZIA [Suspect]
     Indication: CROHN'S DISEASE
     Dosage: 200 MG, 1X/2 WEEKS SUBCUTANEOUS
     Route: 058
     Dates: start: 20090902
  2. PROTONIX [Concomitant]
  3. RIFAMPIN [Concomitant]
  4. IMODIUM /00384302/ [Concomitant]
  5. VITAMIN D [Concomitant]
  6. M.V.I. [Concomitant]
  7. PEPCID AC [Concomitant]
  8. CALCITRIOL [Concomitant]
  9. FOLIC ACID [Concomitant]
  10. PREDNISONE [Concomitant]
  11. BENADRYL [Concomitant]
  12. CYANOCOBALAMIN [Concomitant]
  13. URSODIOL [Concomitant]

REACTIONS (1)
  - GASTROINTESTINAL BACTERIAL INFECTION [None]
